FAERS Safety Report 17792173 (Version 1)
Quarter: 2020Q2

REPORT INFORMATION
  Report Type: Spontaneous
  Country: IT (occurrence: IT)
  Receive Date: 20200515
  Receipt Date: 20200515
  Transmission Date: 20200714
  Serious: Yes (Other)
  Sender: FDA-Public Use
  Company Number: IT-MACLEODS PHARMACEUTICALS US LTD-MAC2020026458

PATIENT

DRUGS (5)
  1. DARUNAVIR/COBICISTAT [Concomitant]
     Active Substance: COBICISTAT\DARUNAVIR ETHANOLATE
     Indication: HIV INFECTION
     Dosage: UNK
     Route: 065
  2. MARAVIROC [Concomitant]
     Active Substance: MARAVIROC
     Indication: HIV INFECTION
     Dosage: 150 MILLIGRAM, BID
     Route: 065
  3. CLOPIDOGREL [Suspect]
     Active Substance: CLOPIDOGREL BISULFATE
     Indication: TRANSIENT ISCHAEMIC ATTACK
     Dosage: 75 MILLIGRAM, QD
     Route: 048
  4. ROSUVASTATIN 20 MG [Interacting]
     Active Substance: ROSUVASTATIN
     Indication: TRANSIENT ISCHAEMIC ATTACK
     Dosage: 20 MILLIGRAM, QD
     Route: 048
  5. RIFAMPICIN [Suspect]
     Active Substance: RIFAMPIN
     Indication: ANTIBIOTIC THERAPY
     Dosage: UNK
     Route: 065

REACTIONS (2)
  - Psychotic symptom [Recovered/Resolved]
  - Drug interaction [Unknown]
